FAERS Safety Report 23692067 (Version 1)
Quarter: 2024Q2

REPORT INFORMATION
  Report Type: Report from Study
  Country: CR (occurrence: CR)
  Receive Date: 20240401
  Receipt Date: 20240401
  Transmission Date: 20240716
  Serious: Yes (Disabling)
  Sender: FDA-Public Use
  Company Number: CR-MYLANLABS-2024M1029034

PATIENT
  Sex: Female
  Weight: 70 kg

DRUGS (1)
  1. LIPITOR [Suspect]
     Active Substance: ATORVASTATIN CALCIUM
     Indication: Product used for unknown indication
     Dosage: 80 MILLIGRAM, QD (DAILY)
     Route: 048

REACTIONS (1)
  - Visual impairment [Not Recovered/Not Resolved]
